FAERS Safety Report 13921070 (Version 5)
Quarter: 2018Q1

REPORT INFORMATION
  Report Type: Report from Study
  Country: BR (occurrence: BR)
  Receive Date: 20170830
  Receipt Date: 20180207
  Transmission Date: 20180508
  Serious: Yes (Other)
  Sender: FDA-Public Use
  Company Number: BR-JNJFOC-20170808448

PATIENT
  Age: 55 Year
  Sex: Female
  Weight: 84 kg

DRUGS (8)
  1. LOSARTAN. [Concomitant]
     Active Substance: LOSARTAN
     Route: 065
  2. CLORANA [Concomitant]
     Active Substance: HYDROCHLOROTHIAZIDE
     Route: 065
  3. SIMPONI [Suspect]
     Active Substance: GOLIMUMAB
     Indication: ANKYLOSING SPONDYLITIS
     Route: 058
     Dates: start: 20170508
  4. RITALINA [Concomitant]
     Active Substance: METHYLPHENIDATE HYDROCHLORIDE
     Route: 065
  5. CORONAR [Concomitant]
     Route: 065
  6. CURAM DUO [Concomitant]
     Active Substance: AMOXICILLIN\CLAVULANIC ACID
     Route: 065
  7. OMEPRAZOLE. [Concomitant]
     Active Substance: OMEPRAZOLE
     Route: 065
  8. SERTRALINE [Concomitant]
     Active Substance: SERTRALINE HYDROCHLORIDE
     Route: 065

REACTIONS (16)
  - Decreased immune responsiveness [Unknown]
  - Drug dose omission [Unknown]
  - Pneumonia [Unknown]
  - Weight increased [Not Recovered/Not Resolved]
  - Product availability issue [Unknown]
  - Rhinitis [Not Recovered/Not Resolved]
  - Varicose vein [Unknown]
  - Fall [Unknown]
  - Urinary tract pain [Unknown]
  - Localised infection [Not Recovered/Not Resolved]
  - Alopecia [Unknown]
  - Blood pressure increased [Unknown]
  - Therapeutic procedure [Unknown]
  - Injury [Unknown]
  - Ankylosing spondylitis [Not Recovered/Not Resolved]
  - Nervous system disorder [Unknown]

NARRATIVE: CASE EVENT DATE: 2017
